FAERS Safety Report 23961904 (Version 4)
Quarter: 2024Q3

REPORT INFORMATION
  Report Type: Report from Study
  Country: US (occurrence: US)
  Receive Date: 20240611
  Receipt Date: 20240703
  Transmission Date: 20241017
  Serious: Yes (Other)
  Sender: UCB
  Company Number: US-UCBSA-2024016047

PATIENT
  Age: 74 Year
  Sex: Female
  Weight: 164 kg

DRUGS (10)
  1. ROTIGOTINE [Suspect]
     Active Substance: ROTIGOTINE
     Indication: Restless legs syndrome
     Dosage: 3 MILLIGRAM, ONCE DAILY (QD)
     Route: 062
  2. BACLOFEN [Concomitant]
     Active Substance: BACLOFEN
     Indication: Product used for unknown indication
     Dosage: 10 MILLIGRAM, 3X/DAY (TID)
     Dates: start: 20200720
  3. CEFROX [CEFUROXIME SODIUM] [Concomitant]
     Indication: Product used for unknown indication
     Dosage: 250 MILLIGRAM, ONCE DAILY (QD)
  4. CHLORAZE [Concomitant]
     Indication: Product used for unknown indication
     Dosage: 25 MILLIGRAM, 2X/DAY (BID)
     Dates: start: 20141119
  5. CLINDINE [Concomitant]
     Indication: Product used for unknown indication
     Dosage: 25 MILLIGRAM, 2X/DAY (BID)
  6. DULOXETINE [Concomitant]
     Active Substance: DULOXETINE
     Indication: Product used for unknown indication
     Dosage: 30 MILLIGRAM, 2X/DAY (BID)
     Dates: start: 20200130
  7. GABAPENTIN [Concomitant]
     Active Substance: GABAPENTIN
     Indication: Product used for unknown indication
     Dosage: UNK
  8. NORTRIPTYLINE [Concomitant]
     Active Substance: NORTRIPTYLINE
     Indication: Product used for unknown indication
     Dosage: 25 MILLIGRAM AT BEDTIME
     Dates: start: 20130313
  9. TIZANIDINE [Concomitant]
     Active Substance: TIZANIDINE
     Indication: Product used for unknown indication
     Dosage: 2 MILLIGRAM AT BEDTIME
     Dates: start: 20200424
  10. TRAMADOL [Concomitant]
     Active Substance: TRAMADOL\TRAMADOL HYDROCHLORIDE
     Indication: Product used for unknown indication
     Dosage: 50 MILLIGRAM EVERY 4 HOURS

REACTIONS (19)
  - Spinal operation [Recovering/Resolving]
  - Internal fixation of fracture [Recovered/Resolved]
  - Medical device removal [Unknown]
  - Type 2 diabetes mellitus [Unknown]
  - Dry eye [Unknown]
  - Vasomotor rhinitis [Unknown]
  - Sleep apnoea syndrome [Unknown]
  - Lumbar spinal stenosis [Unknown]
  - Arthritis [Unknown]
  - Scoliosis [Unknown]
  - Spinal support [Unknown]
  - Osteoporosis [Unknown]
  - Hypoacusis [Unknown]
  - Therapy interrupted [Unknown]
  - Product availability issue [Unknown]
  - Product adhesion issue [Unknown]
  - Product physical issue [Unknown]
  - Expired product administered [Unknown]
  - Wrong product administered [Unknown]

NARRATIVE: CASE EVENT DATE: 20181001
